FAERS Safety Report 12760329 (Version 4)
Quarter: 2017Q4

REPORT INFORMATION
  Report Type: Report from Study
  Country: PA (occurrence: PA)
  Receive Date: 20160919
  Receipt Date: 20171004
  Transmission Date: 20180320
  Serious: Yes (Other)
  Sender: FDA-Public Use
  Company Number: PHHY2016PA005251

PATIENT
  Age: 32 Year
  Sex: Female

DRUGS (2)
  1. GILENYA [Suspect]
     Active Substance: FINGOLIMOD HYDROCHLORIDE
     Indication: PRODUCT USED FOR UNKNOWN INDICATION
     Dosage: 0.5 MG, UNK
     Route: 065
  2. KETAMINE [Suspect]
     Active Substance: KETAMINE
     Indication: PRODUCT USED FOR UNKNOWN INDICATION
     Route: 065

REACTIONS (23)
  - Meige^s syndrome [Unknown]
  - Hypoaesthesia [Unknown]
  - Intraocular pressure increased [Unknown]
  - Hormone level abnormal [Unknown]
  - Aphthous ulcer [Unknown]
  - Brain oedema [Unknown]
  - Seizure [Unknown]
  - Pain [Unknown]
  - Dysstasia [Unknown]
  - Disease recurrence [Unknown]
  - Malaise [Unknown]
  - Discomfort [Unknown]
  - Pain in jaw [Unknown]
  - Dysphagia [Unknown]
  - Blood pressure increased [Unknown]
  - Hypoaesthesia oral [Unknown]
  - Hemiparesis [Unknown]
  - Nervous system disorder [Unknown]
  - Hallucination [Unknown]
  - Eye pain [Unknown]
  - Dysarthria [Unknown]
  - Central nervous system lesion [Unknown]
  - Drug resistance [Unknown]
